FAERS Safety Report 12636789 (Version 2)
Quarter: 2016Q3

REPORT INFORMATION
  Report Type: Report from Study
  Country: BR (occurrence: BR)
  Receive Date: 20160809
  Receipt Date: 20160816
  Transmission Date: 20161109
  Serious: Yes (Hospitalization)
  Sender: FDA-Public Use
  Company Number: BR-ROCHE-1633828

PATIENT
  Age: 73 Year
  Sex: Female

DRUGS (44)
  1. OSELTAMIVIR [Concomitant]
     Active Substance: OSELTAMIVIR
     Route: 065
     Dates: start: 20150524, end: 20150529
  2. PERTUZUMAB [Suspect]
     Active Substance: PERTUZUMAB
     Dosage: DATE OF LAST DOSE PRIOR TO SAE: 18/AUG/2015?DATE OF LAST DOSE PRIOR TO SAE: 07/JUL/2016?MAINTAINANCE
     Route: 042
     Dates: start: 20140701, end: 20150911
  3. ATORVASTATIN [Concomitant]
     Active Substance: ATORVASTATIN
     Route: 065
     Dates: start: 1982
  4. DIPYRONE [Concomitant]
     Active Substance: DIPYRONE
     Dosage: 240 DROPS
     Route: 065
     Dates: start: 20140604
  5. LOSARTAN. [Concomitant]
     Active Substance: LOSARTAN
     Route: 065
     Dates: start: 20141017
  6. OMEPRAZOLE. [Concomitant]
     Active Substance: OMEPRAZOLE
     Indication: PROPHYLAXIS
     Dosage: DAILY
     Route: 065
     Dates: start: 20140610
  7. LIPLESS [Concomitant]
     Active Substance: CIPROFIBRATE
     Route: 065
     Dates: start: 201401
  8. ONDANSETRAN [Concomitant]
     Active Substance: ONDANSETRON HYDROCHLORIDE
     Indication: NAUSEA
     Route: 065
     Dates: start: 20140610, end: 20140812
  9. MIRTAZAPINE. [Concomitant]
     Active Substance: MIRTAZAPINE
     Route: 065
     Dates: start: 20140801
  10. CARVEDILOL. [Concomitant]
     Active Substance: CARVEDILOL
     Route: 065
     Dates: start: 20141219, end: 20150202
  11. CARVEDILOL. [Concomitant]
     Active Substance: CARVEDILOL
     Route: 065
     Dates: start: 20150203, end: 20150427
  12. CLARITHROMYCIN. [Concomitant]
     Active Substance: CLARITHROMYCIN
     Route: 065
     Dates: start: 20150523, end: 20150529
  13. TRASTUZUMAB [Suspect]
     Active Substance: TRASTUZUMAB
     Dosage: DATE OF LAST DOSE PRIOR TO SAE: 18/AUG/2015. (456 MG)?MAINTAINANCE DOSE
     Route: 042
     Dates: start: 20140702, end: 20150911
  14. LOSARTAN. [Concomitant]
     Active Substance: LOSARTAN
     Route: 065
     Dates: start: 20141017
  15. FENTANIL [Concomitant]
     Active Substance: FENTANYL
     Dosage: 50 MCG EACH 3 DAYS
     Route: 065
     Dates: start: 20141024
  16. MIRTAZAPINE. [Concomitant]
     Active Substance: MIRTAZAPINE
     Route: 065
     Dates: start: 20140610, end: 20140731
  17. REMERON [Concomitant]
     Active Substance: MIRTAZAPINE
     Route: 065
     Dates: start: 20140630
  18. SPIRONOLACTONE. [Concomitant]
     Active Substance: SPIRONOLACTONE
     Route: 065
     Dates: start: 20150530
  19. FUROSEMIDE. [Concomitant]
     Active Substance: FUROSEMIDE
     Route: 065
     Dates: start: 20150530, end: 20150608
  20. TRASTUZUMAB [Suspect]
     Active Substance: TRASTUZUMAB
     Indication: HER-2 POSITIVE BREAST CANCER
     Dosage: LOADING DOSE
     Route: 042
     Dates: start: 20140611, end: 20140611
  21. PACLITAXEL. [Suspect]
     Active Substance: PACLITAXEL
     Indication: HER-2 POSITIVE BREAST CANCER
     Dosage: DATE OF LAST DOSE PRIOR TO SAE: 22/JUL/2014.
     Route: 042
     Dates: start: 20140611
  22. FENTANIL [Concomitant]
     Active Substance: FENTANYL
     Dosage: 50 MCG EACH 3 DAYS
     Route: 065
     Dates: start: 20140702, end: 20141024
  23. SUCRALFATE. [Concomitant]
     Active Substance: SUCRALFATE
     Route: 065
     Dates: start: 20140710, end: 20140812
  24. AMPHOTERICIN B/TETRACYCLINE [Concomitant]
     Route: 067
     Dates: start: 20140710, end: 20140716
  25. CARVEDILOL. [Concomitant]
     Active Substance: CARVEDILOL
     Route: 065
     Dates: start: 20141021, end: 20141218
  26. CALCIUM CARBONATE. [Concomitant]
     Active Substance: CALCIUM CARBONATE
     Route: 065
     Dates: start: 20150911
  27. FUROSEMIDE. [Concomitant]
     Active Substance: FUROSEMIDE
     Route: 065
     Dates: start: 20150609
  28. CAPTOPRIL. [Concomitant]
     Active Substance: CAPTOPRIL
     Route: 065
     Dates: start: 20140930, end: 20140930
  29. PREDNISONE. [Concomitant]
     Active Substance: PREDNISONE
     Route: 065
     Dates: start: 20150524, end: 20150527
  30. PERTUZUMAB [Suspect]
     Active Substance: PERTUZUMAB
     Dosage: TEMPORARILY INTERRUPTED
     Route: 042
     Dates: start: 20150915, end: 20160729
  31. TRASTUZUMAB [Suspect]
     Active Substance: TRASTUZUMAB
     Dosage: THERAPY INTERRUPTED?DATE OF LAST DOSE PRIOR TO SAE (506 MG): 07/JUL/2016
     Route: 042
     Dates: start: 20150915, end: 20160729
  32. MORPHINE [Concomitant]
     Active Substance: MORPHINE
     Route: 065
     Dates: start: 20140603
  33. FENTANIL [Concomitant]
     Active Substance: FENTANYL
     Dosage: 25 MCG EACH 3 DAYS
     Route: 065
     Dates: start: 20140610, end: 20140701
  34. SUCRALFATE. [Concomitant]
     Active Substance: SUCRALFATE
     Route: 065
     Dates: start: 20140701
  35. CETRIMIDE [Concomitant]
     Active Substance: CETRIMIDE\LIDOCAINE
     Route: 065
     Dates: start: 20140712, end: 20140805
  36. NITROFURANTOIN. [Concomitant]
     Active Substance: NITROFURANTOIN
     Route: 065
     Dates: start: 20140730, end: 20140730
  37. HYDRALAZINE HYDROCHLORIDE. [Concomitant]
     Active Substance: HYDRALAZINE HYDROCHLORIDE
     Route: 065
     Dates: start: 20140530, end: 20140530
  38. NORFLOXACIN [Concomitant]
     Active Substance: NORFLOXACIN
     Route: 065
     Dates: start: 20140630, end: 20140706
  39. PERTUZUMAB [Suspect]
     Active Substance: PERTUZUMAB
     Indication: HER-2 POSITIVE BREAST CANCER
     Dosage: LOADING DOSE
     Route: 042
     Dates: start: 20140610, end: 20140610
  40. LOSARTAN. [Concomitant]
     Active Substance: LOSARTAN
     Route: 065
     Dates: start: 198212, end: 20141016
  41. LORATADINE. [Concomitant]
     Active Substance: LORATADINE
     Route: 065
     Dates: start: 20140607, end: 20140609
  42. NYSTATIN. [Concomitant]
     Active Substance: NYSTATIN
     Route: 065
     Dates: start: 20140618, end: 20140812
  43. CARVEDILOL. [Concomitant]
     Active Substance: CARVEDILOL
     Route: 065
     Dates: start: 20150428
  44. HYDROCHLOROTHIAZIDE. [Concomitant]
     Active Substance: HYDROCHLOROTHIAZIDE
     Route: 065
     Dates: start: 20141111

REACTIONS (3)
  - Infectious colitis [Recovered/Resolved]
  - Renal disorder [Recovering/Resolving]
  - Colitis [Recovered/Resolved]

NARRATIVE: CASE EVENT DATE: 20150911
